FAERS Safety Report 17922720 (Version 1)
Quarter: 2020Q2

REPORT INFORMATION
  Report Type: Spontaneous
  Country: US (occurrence: US)
  Receive Date: 20200619
  Receipt Date: 20200619
  Transmission Date: 20200714
  Serious: No
  Sender: FDA-Public Use
  Company Number: None

PATIENT
  Sex: Male

DRUGS (6)
  1. APHET/DEXTR [Concomitant]
  2. SOLIRIS [Suspect]
     Active Substance: ECULIZUMAB
     Indication: OSTEOARTHRITIS
     Dosage: ?          OTHER FREQUENCY:35MIN Q 2 WKS;?
     Route: 042
     Dates: start: 20190825
  3. DULOXETINE. [Concomitant]
     Active Substance: DULOXETINE
  4. DEXTROAMPHET SACCHARAT, AMPHET ASPARTATE, DEXTROAMPHET SULFATE AND AMPHET SULFAT [Concomitant]
     Active Substance: AMPHETAMINE ASPARTATE\AMPHETAMINE SULFATE\DEXTROAMPHETAMINE SACCHARATE\DEXTROAMPHETAMINE SULFATE
  5. PREDNISONE. [Concomitant]
     Active Substance: PREDNISONE
  6. MYCOPHENOLAT [Concomitant]
     Active Substance: MYCOPHENOLATE MOFETIL

REACTIONS (3)
  - Arthralgia [None]
  - Back pain [None]
  - Myalgia [None]
